FAERS Safety Report 6514681-X (Version None)
Quarter: 2009Q4

REPORT INFORMATION
  Report Type: 
  Country: None (occurrence: None)
  Receive Date: 20091222
  Receipt Date: 20091222
  Transmission Date: 20100525
  Serious: Yes (Other)
  Sender: FDA-Public Use
  Company Number: None

PATIENT
  Sex: Female
  Weight: 92.9874 kg

DRUGS (2)
  1. LEVAQUIN 750MG ONE QD PO X 10DAYS 6/12/09 [Suspect]
     Indication: SINUSITIS
     Route: 048
     Dates: start: 20090612, end: 20090622
  2. LEVAQUIN [Suspect]
     Indication: SINUSITIS
     Route: 048
     Dates: start: 20090918, end: 20090925

REACTIONS (2)
  - ANOSMIA [None]
  - DYSGEUSIA [None]
